FAERS Safety Report 14737682 (Version 3)
Quarter: 2019Q1

REPORT INFORMATION
  Report Type: Spontaneous
  Country: US (occurrence: US)
  Receive Date: 20180409
  Receipt Date: 20190329
  Transmission Date: 20190417
  Serious: Yes (Other)
  Sender: FDA-Public Use
  Company Number: US-PFIZER INC-2018140821

PATIENT
  Age: 50 Year
  Sex: Female

DRUGS (29)
  1. NEXIUM [Suspect]
     Active Substance: ESOMEPRAZOLE MAGNESIUM
     Dosage: UNK
     Route: 048
     Dates: start: 200306, end: 201607
  2. PRILOSEC [Suspect]
     Active Substance: OMEPRAZOLE MAGNESIUM
     Dosage: UNK
     Route: 048
     Dates: start: 201503, end: 201609
  3. LANTUS [Concomitant]
     Active Substance: INSULIN GLARGINE
  4. BACLOFEN. [Concomitant]
     Active Substance: BACLOFEN
  5. OMEGA 3 [FISH OIL] [Concomitant]
     Active Substance: FISH OIL
  6. SIMVASTATIN. [Concomitant]
     Active Substance: SIMVASTATIN
  7. DEXILANT [Suspect]
     Active Substance: DEXLANSOPRAZOLE
     Dosage: UNK
     Route: 065
     Dates: start: 200306, end: 201607
  8. GLIMEPIRIDE. [Concomitant]
     Active Substance: GLIMEPIRIDE
  9. WARFARIN SODIUM. [Concomitant]
     Active Substance: WARFARIN SODIUM
  10. BUMETANIDE. [Concomitant]
     Active Substance: BUMETANIDE
     Dosage: UNK
  11. JANUVIA [Concomitant]
     Active Substance: SITAGLIPTIN PHOSPHATE
  12. BUMETANIDE. [Concomitant]
     Active Substance: BUMETANIDE
     Dosage: UNK
  13. LEVOTHYROXINE. [Concomitant]
     Active Substance: LEVOTHYROXINE
  14. PRILOSEC OTC [Suspect]
     Active Substance: OMEPRAZOLE MAGNESIUM
     Dosage: UNK
     Route: 048
     Dates: start: 201503, end: 201609
  15. TOPIRAMATE. [Concomitant]
     Active Substance: TOPIRAMATE
  16. HYDROCO/APAP [Concomitant]
     Active Substance: ACETAMINOPHEN\HYDROCODONE
  17. PROTONIX [Suspect]
     Active Substance: PANTOPRAZOLE SODIUM
     Dosage: UNK
     Route: 065
     Dates: start: 200306, end: 201607
  18. PREVACID 24 HR [Suspect]
     Active Substance: LANSOPRAZOLE
     Dosage: UNK
     Route: 065
     Dates: start: 200306, end: 201607
  19. NEXIUM 24HR [Suspect]
     Active Substance: ESOMEPRAZOLE MAGNESIUM
     Dosage: UNK
     Route: 048
     Dates: start: 200306, end: 201607
  20. PRILOSEC OTC [Suspect]
     Active Substance: OMEPRAZOLE MAGNESIUM
     Dosage: UNK
     Route: 048
     Dates: start: 200306, end: 201607
  21. LISINOPRIL. [Concomitant]
     Active Substance: LISINOPRIL
  22. METOPROLOL TARTRATE. [Concomitant]
     Active Substance: METOPROLOL TARTRATE
  23. NEXIUM [Suspect]
     Active Substance: ESOMEPRAZOLE MAGNESIUM
     Dosage: UNK
     Route: 048
     Dates: start: 201503, end: 201609
  24. PREVACID [Suspect]
     Active Substance: LANSOPRAZOLE
     Dosage: UNK
     Route: 065
     Dates: start: 200306, end: 201607
  25. PRILOSEC [Suspect]
     Active Substance: OMEPRAZOLE MAGNESIUM
     Dosage: UNK
     Route: 048
     Dates: start: 200306, end: 201607
  26. CALCITRIOL. [Concomitant]
     Active Substance: CALCITRIOL
  27. LACTULOSE. [Concomitant]
     Active Substance: LACTULOSE
  28. DOXYCYCLINE HYCLATE. [Concomitant]
     Active Substance: DOXYCYCLINE HYCLATE
  29. METFORMIN [Concomitant]
     Active Substance: METFORMIN HYDROCHLORIDE

REACTIONS (4)
  - Chronic kidney disease [Unknown]
  - Renal failure [Unknown]
  - End stage renal disease [Unknown]
  - Acute kidney injury [Unknown]

NARRATIVE: CASE EVENT DATE: 20150712
